FAERS Safety Report 9852503 (Version 1)
Quarter: 2014Q1

REPORT INFORMATION
  Report Type: Spontaneous
  Country: US (occurrence: None)
  Receive Date: 20140127
  Receipt Date: 20140127
  Transmission Date: 20141002
  Serious: Yes (Other)
  Sender: FDA-Public Use
  Company Number: 2013P1022188

PATIENT
  Age: 67 Year
  Sex: Female

DRUGS (1)
  1. MORPHINE [Suspect]
     Indication: PAIN
     Dates: start: 2008, end: 2008

REACTIONS (6)
  - Nausea [None]
  - Vomiting [None]
  - Haemorrhage [None]
  - Joint dislocation [None]
  - Hypersensitivity [None]
  - Vascular injury [None]
